FAERS Safety Report 8559296-7 (Version None)
Quarter: 2012Q3

REPORT INFORMATION
  Report Type: 
  Country: None (occurrence: None)
  Receive Date: 20120802
  Receipt Date: 20120730
  Transmission Date: 20120928
  Serious: Yes (Other)
  Sender: FDA-Public Use
  Company Number: PHEH2012US010495

PATIENT
  Sex: Female
  Weight: 48.13 kg

DRUGS (3)
  1. PENTASA [Concomitant]
     Indication: COLITIS ULCERATIVE
     Dosage: 4 DF, BID
     Route: 048
  2. CALCIUM WITH VITAMIN D [Concomitant]
     Dosage: 600/400 BID
     Route: 048
  3. RECLAST [Suspect]
     Indication: OSTEOPOROSIS
     Dosage: 5 MG/ 100 ML YEARLY
     Route: 042
     Dates: start: 20111229

REACTIONS (3)
  - NERVE INJURY [None]
  - BLINDNESS TRANSIENT [None]
  - HYPOAESTHESIA [None]
